FAERS Safety Report 7569445-5 (Version None)
Quarter: 2011Q2

REPORT INFORMATION
  Report Type: 
  Country: None (occurrence: None)
  Receive Date: 20110624
  Receipt Date: 20110620
  Transmission Date: 20111010
  Serious: Yes (Other)
  Sender: FDA-Public Use
  Company Number: US-BIOGENIDEC-2011BI016955

PATIENT
  Age: 44 Year
  Sex: Female

DRUGS (12)
  1. SIMVASTATIN [Concomitant]
     Route: 048
     Dates: end: 20100729
  2. NAMENDA [Concomitant]
  3. AMPYRA [Concomitant]
     Dates: end: 20100729
  4. LEXAPRO [Concomitant]
  5. BUPROPION HYDROCHLORIDE (WELLBUTRIN XL) [Concomitant]
  6. PROVIGIL [Concomitant]
  7. BACLOFEN [Concomitant]
  8. VITAMIN D [Concomitant]
  9. TYSABRI [Suspect]
     Indication: MULTIPLE SCLEROSIS
     Route: 042
     Dates: start: 20070309, end: 20100713
  10. ENABLEX [Concomitant]
  11. ADDERALL XR 10 [Concomitant]
  12. LIDODERM [Concomitant]

REACTIONS (1)
  - HEPATITIS [None]
